FAERS Safety Report 17460078 (Version 1)
Quarter: 2020Q1

REPORT INFORMATION
  Report Type: Spontaneous
  Country: US (occurrence: US)
  Receive Date: 20200226
  Receipt Date: 20200226
  Transmission Date: 20200409
  Serious: Yes (Other)
  Sender: FDA-Public Use
  Company Number: US-TARO-2020TAR00411

PATIENT
  Age: 94 Year
  Sex: Male

DRUGS (1)
  1. AMIODARONE HCL TABLET 400 MG [Suspect]
     Active Substance: AMIODARONE HYDROCHLORIDE
     Indication: ATRIAL FIBRILLATION
     Dosage: 400 MILLIGRAM, OD
     Route: 065

REACTIONS (1)
  - Cornea verticillata [Unknown]
